FAERS Safety Report 6297610-6 (Version None)
Quarter: 2009Q3

REPORT INFORMATION
  Report Type: 
  Country: None (occurrence: None)
  Receive Date: 20090805
  Receipt Date: 20090728
  Transmission Date: 20100115
  Serious: Yes (Other)
  Sender: FDA-Public Use
  Company Number: US-PFIZER INC-2008055806

PATIENT
  Sex: Female
  Weight: 49.9 kg

DRUGS (7)
  1. DIFLUCAN [Suspect]
  2. FLUCONAZOLE [Suspect]
     Indication: SYSTEMIC CANDIDA
  3. ANTIBIOTICS [Suspect]
  4. OXYCONTIN [Concomitant]
  5. PERCOCET [Concomitant]
  6. XANAX [Concomitant]
  7. ANALGESICS [Concomitant]

REACTIONS (12)
  - AUTOIMMUNE THYROIDITIS [None]
  - BLOOD PRESSURE INCREASED [None]
  - DISABILITY [None]
  - HYPOTHYROIDISM [None]
  - INFECTION [None]
  - INFLUENZA LIKE ILLNESS [None]
  - MALAISE [None]
  - PAIN [None]
  - PYREXIA [None]
  - SYSTEMIC LUPUS ERYTHEMATOSUS [None]
  - WEIGHT DECREASED [None]
  - WEIGHT INCREASED [None]
